FAERS Safety Report 9934074 (Version 1)
Quarter: 2014Q1

REPORT INFORMATION
  Report Type: Spontaneous
  Country: JP (occurrence: JP)
  Receive Date: 20140228
  Receipt Date: 20140228
  Transmission Date: 20141002
  Serious: Yes (Other)
  Sender: FDA-Public Use
  Company Number: CHPA2014JP003149

PATIENT
  Age: 71 Year
  Sex: Female

DRUGS (5)
  1. DICLOFENAC [Suspect]
     Route: 067
  2. LOXOPROFEN [Suspect]
     Dosage: 180 MG, DAY
  3. PREDNISOLONE [Suspect]
     Dosage: 10 MG, DAY
  4. LEVOFLOXACIN [Suspect]
  5. FLUOROMETHOLONE [Suspect]

REACTIONS (1)
  - Renal impairment [Unknown]
